FAERS Safety Report 8987359 (Version 2)
Quarter: 2013Q1

REPORT INFORMATION
  Report Type: Spontaneous
  Country: GB (occurrence: GB)
  Receive Date: 20121226
  Receipt Date: 20130107
  Transmission Date: 20140127
  Serious: Yes (Other)
  Sender: FDA-Public Use
  Company Number: PHFR2012GB006187

PATIENT
  Age: 47 Year
  Sex: Male

DRUGS (1)
  1. CLOZARIL [Suspect]
     Indication: SCHIZOPHRENIA
     Dosage: 350 MG, UNK
     Route: 048
     Dates: start: 20120401, end: 20121204

REACTIONS (8)
  - Influenza like illness [Recovered/Resolved]
  - Anisocytosis [Unknown]
  - Malaise [Recovered/Resolved]
  - Antipsychotic drug level increased [Recovered/Resolved]
  - Liver function test abnormal [Recovered/Resolved]
  - Alanine aminotransferase increased [Unknown]
  - Eosinophilia [Unknown]
  - Differential white blood cell count abnormal [Recovered/Resolved]
